FAERS Safety Report 5940695-4 (Version None)
Quarter: 2008Q4

REPORT INFORMATION
  Report Type: 
  Country: None (occurrence: None)
  Receive Date: 20081103
  Receipt Date: 20081103
  Transmission Date: 20090506
  Serious: Yes (Hospitalization)
  Sender: FDA-Public Use
  Company Number: None

PATIENT
  Sex: Male
  Weight: 101.2 kg

DRUGS (2)
  1. XELODA [Suspect]
     Dosage: 31500 MG
  2. ELOXATIN [Suspect]
     Dosage: 436 MG

REACTIONS (10)
  - ACINETOBACTER INFECTION [None]
  - ASPIRATION [None]
  - ATRIAL FIBRILLATION [None]
  - BLOOD PRESSURE FLUCTUATION [None]
  - DEHYDRATION [None]
  - ENTERITIS [None]
  - HAEMOGLOBIN DECREASED [None]
  - HYPOXIA [None]
  - PNEUMONIA [None]
  - RENAL FAILURE [None]
